FAERS Safety Report 10129592 (Version 1)
Quarter: 2014Q2

REPORT INFORMATION
  Report Type: Spontaneous
  Country: US (occurrence: None)
  Receive Date: 20140424
  Receipt Date: 20140424
  Transmission Date: 20141212
  Serious: Yes (Hospitalization)
  Sender: FDA-Public Use
  Company Number: None

PATIENT
  Age: 67 Year
  Sex: Male
  Weight: 96.16 kg

DRUGS (8)
  1. VOSAROXIN [Suspect]
     Indication: MYELODYSPLASTIC SYNDROME
     Route: 042
     Dates: start: 20140411
  2. AZACITADINE [Suspect]
     Indication: MYELODYSPLASTIC SYNDROME
     Dosage: IV 75MG/M2; QD X 7
     Route: 042
     Dates: start: 20140411, end: 20140417
  3. AMLODIPINE BESYLATE [Concomitant]
  4. ASPIR-LOW [Concomitant]
  5. CRESTOR [Concomitant]
  6. LISINOPRIL [Concomitant]
  7. METOPROLOL ER [Concomitant]
  8. AMBIEN [Concomitant]

REACTIONS (4)
  - Febrile neutropenia [None]
  - Bacterial test positive [None]
  - Catheter site erythema [None]
  - Catheter site pain [None]
